FAERS Safety Report 8163987-X (Version None)
Quarter: 2012Q1

REPORT INFORMATION
  Report Type: 
  Country: None (occurrence: None)
  Receive Date: 20120224
  Receipt Date: 20120213
  Transmission Date: 20120608
  Serious: Yes (Other)
  Sender: FDA-Public Use
  Company Number: PHHY2011BR45618

PATIENT
  Sex: Male

DRUGS (4)
  1. CLOZAPINE [Suspect]
     Dosage: 9 DF/DAY
     Route: 048
     Dates: start: 20110829
  2. DIAZEPAM [Concomitant]
     Indication: ANXIETY
     Dosage: 10 MG, HALF TABLET AT NIGHT
  3. AKINETON [Concomitant]
     Indication: PARKINSON'S DISEASE
     Dosage: 2 MG, 2 DF,DAILY
  4. CLOZAPINE [Suspect]
     Indication: PERSECUTORY DELUSION
     Dosage: 100 MG,
     Dates: start: 20100601

REACTIONS (5)
  - CATATONIA [None]
  - TARDIVE DYSKINESIA [None]
  - CRYING [None]
  - DRUG INEFFECTIVE [None]
  - CARDIAC DISCOMFORT [None]
